FAERS Safety Report 9028485 (Version 1)
Quarter: 2013Q1

REPORT INFORMATION
  Report Type: Spontaneous
  Country: US (occurrence: US)
  Receive Date: 20130124
  Receipt Date: 20130124
  Transmission Date: 20140127
  Serious: No
  Sender: FDA-Public Use
  Company Number: US-009507513-1301USA006371

PATIENT
  Sex: Male

DRUGS (3)
  1. AZASITE [Suspect]
     Indication: EYE INFECTION
     Dosage: ONE DROP IN EACH EYE ONCE A DAY FOR 2 MONTHS
     Route: 047
     Dates: start: 20121219
  2. GLIPIZIDE [Concomitant]
  3. METFORMIN [Concomitant]

REACTIONS (1)
  - Eye disorder [Recovered/Resolved]
